FAERS Safety Report 24966709 (Version 1)
Quarter: 2025Q1

REPORT INFORMATION
  Report Type: Spontaneous
  Country: CN (occurrence: CN)
  Receive Date: 20250213
  Receipt Date: 20250213
  Transmission Date: 20250409
  Serious: Yes (Hospitalization, Disabling, Other)
  Sender: NOVARTIS
  Company Number: CN-002147023-NVSC2025CN022727

PATIENT
  Age: 59 Year
  Sex: Female
  Weight: 44 kg

DRUGS (1)
  1. CARBAMAZEPINE [Suspect]
     Active Substance: CARBAMAZEPINE
     Indication: Trigeminal neuralgia
     Dosage: 0.200 G, BID
     Route: 048
     Dates: start: 20250114, end: 20250125

REACTIONS (20)
  - Rash [Recovering/Resolving]
  - Hepatic function abnormal [Recovering/Resolving]
  - Drug eruption [Unknown]
  - Dermatitis exfoliative [Unknown]
  - Leukoplakia oral [Unknown]
  - Epidermolysis bullosa [Unknown]
  - Papule [Not Recovered/Not Resolved]
  - Mouth ulceration [Not Recovered/Not Resolved]
  - Pyrexia [Not Recovered/Not Resolved]
  - Chills [Not Recovered/Not Resolved]
  - Cough [Not Recovered/Not Resolved]
  - Skin exfoliation [Unknown]
  - Oral mucosa erosion [Unknown]
  - Trismus [Unknown]
  - Nikolsky^s sign positive [Unknown]
  - Vulval leukoplakia [Unknown]
  - Purulent discharge [Unknown]
  - Chapped lips [Unknown]
  - Erythema of eyelid [Unknown]
  - Ectropion [Unknown]

NARRATIVE: CASE EVENT DATE: 20250125
